FAERS Safety Report 5817301-2 (Version None)
Quarter: 2008Q3

REPORT INFORMATION
  Report Type: 
  Country: None (occurrence: None)
  Receive Date: 20080722
  Receipt Date: 20080718
  Transmission Date: 20090109
  Serious: Yes (Other)
  Sender: FDA-Public Use
  Company Number: B0529772A

PATIENT
  Age: 31 Year
  Sex: Male

DRUGS (5)
  1. PAXIL [Suspect]
     Indication: DEPRESSION
     Dosage: 20MG PER DAY
     Route: 048
     Dates: start: 20080101
  2. AMOXAPINE [Suspect]
     Route: 048
  3. MEILAX [Suspect]
     Route: 048
  4. MYSLEE [Suspect]
     Route: 048
  5. RESLIN [Suspect]
     Route: 048

REACTIONS (1)
  - ALTERED STATE OF CONSCIOUSNESS [None]
